FAERS Safety Report 21025177 (Version 1)
Quarter: 2022Q2

REPORT INFORMATION
  Report Type: Report from Study
  Country: CA (occurrence: CA)
  Receive Date: 20220630
  Receipt Date: 20220630
  Transmission Date: 20220720
  Serious: Yes (Other)
  Sender: FDA-Public Use
  Company Number: CA-CELLTRION INC.-2022CA010151

PATIENT

DRUGS (1)
  1. RITUXIMAB [Suspect]
     Active Substance: RITUXIMAB
     Indication: Hairy cell leukaemia
     Dosage: 375 MG/M2, 650 MG IV Q WEEKLY X 4 DOSES THEN Q 3MO X 2 YEARS
     Route: 042

REACTIONS (3)
  - Hairy cell leukaemia [Unknown]
  - Insurance issue [Unknown]
  - Off label use [Unknown]
